FAERS Safety Report 12115383 (Version 2)
Quarter: 2016Q2

REPORT INFORMATION
  Report Type: Report from Study
  Country: GB (occurrence: GB)
  Receive Date: 20160225
  Receipt Date: 20160516
  Transmission Date: 20160815
  Serious: Yes (Death, Other)
  Sender: FDA-Public Use
  Company Number: GB-VERTEX PHARMACEUTICALS-2016-000990

PATIENT
  Age: 30 Year
  Sex: Male
  Weight: 62 kg

DRUGS (2)
  1. ORKAMBI [Suspect]
     Active Substance: IVACAFTOR\LUMACAFTOR
     Indication: CYSTIC FIBROSIS
     Dosage: 200MG/125 MG, QD
     Route: 048
     Dates: start: 20151229, end: 20160104
  2. VORICONAZOLE. [Concomitant]
     Active Substance: VORICONAZOLE
     Dosage: 200 MG, BID THROUGHOUT

REACTIONS (3)
  - Respiratory failure [Fatal]
  - Infective pulmonary exacerbation of cystic fibrosis [Fatal]
  - Sputum increased [Unknown]

NARRATIVE: CASE EVENT DATE: 20151230
